FAERS Safety Report 7010642-5 (Version None)
Quarter: 2010Q3

REPORT INFORMATION
  Report Type: 
  Country: None (occurrence: None)
  Receive Date: 20100923
  Receipt Date: 20100915
  Transmission Date: 20110219
  Serious: Yes (Other)
  Sender: FDA-Public Use
  Company Number: US-AMGEN-KDL439065

PATIENT
  Sex: Female

DRUGS (1)
  1. ENBREL [Suspect]
     Route: 064
     Dates: start: 20060801

REACTIONS (3)
  - ABORTION SPONTANEOUS [None]
  - CYTOGENETIC ABNORMALITY [None]
  - MATERNAL DRUGS AFFECTING FOETUS [None]
